FAERS Safety Report 7435659-8 (Version None)
Quarter: 2011Q2

REPORT INFORMATION
  Report Type: 
  Country: None (occurrence: None)
  Receive Date: 20110425
  Receipt Date: 20110422
  Transmission Date: 20111010
  Serious: Yes (Other)
  Sender: FDA-Public Use
  Company Number: US-PFIZER INC-2011088025

PATIENT
  Sex: Female
  Weight: 57.143 kg

DRUGS (2)
  1. MEDROL [Suspect]
     Indication: SYSTEMIC LUPUS ERYTHEMATOSUS
     Dosage: 4 MG, 1X/DAY
     Route: 048
  2. PLAQUENIL [Concomitant]
     Dosage: UNK

REACTIONS (3)
  - PAIN [None]
  - OEDEMA PERIPHERAL [None]
  - SYSTEMIC LUPUS ERYTHEMATOSUS [None]
